FAERS Safety Report 7604746-3 (Version None)
Quarter: 2011Q3

REPORT INFORMATION
  Report Type: 
  Country: None (occurrence: None)
  Receive Date: 20110712
  Receipt Date: 20110628
  Transmission Date: 20111222
  Serious: Yes (Other)
  Sender: FDA-Public Use
  Company Number: PHHY2011US30056

PATIENT
  Age: 53 Year
  Sex: Female

DRUGS (11)
  1. TEKTURNA [Suspect]
     Indication: HYPERTENSION
     Dosage: 1 DF, 150 MG
     Route: 048
  2. GABAPENTIN [Concomitant]
  3. METOPROLOL TARTRATE [Suspect]
     Dosage: 50 MG IN MORNING AND 100 MG IN EVENING
  4. HYDROCODONE [Concomitant]
  5. CALCIUM CARBONATE [Concomitant]
  6. DIOVAN HCT [Suspect]
     Dosage: 180 MG VALS/ 12.5 MG HYDRO
     Route: 048
  7. ASPIRIN [Concomitant]
  8. ASPIRIN [Concomitant]
     Indication: HYPERTENSION
     Dosage: 81 MG
  9. LOVASTATIN [Concomitant]
  10. MULTI-VIT [Concomitant]
  11. DIOVAN HCT [Suspect]
     Indication: HYPERTENSION
     Dosage: 1 DF, QD
     Route: 048

REACTIONS (7)
  - BLOOD PRESSURE INADEQUATELY CONTROLLED [None]
  - ABDOMINAL HERNIA [None]
  - ERYTHEMA [None]
  - PAIN [None]
  - ABDOMINAL PAIN UPPER [None]
  - BLOOD PRESSURE INCREASED [None]
  - FLUSHING [None]
